FAERS Safety Report 5145379-0 (Version None)
Quarter: 2006Q4

REPORT INFORMATION
  Report Type: 
  Country: None (occurrence: None)
  Receive Date: 20061101
  Receipt Date: 20061011
  Transmission Date: 20070319
  Serious: Yes (Other)
  Sender: FDA-Public Use
  Company Number: AU200610003165

PATIENT
  Age: 22 Year
  Sex: Male

DRUGS (3)
  1. ZYPREXA [Suspect]
     Indication: BIPOLAR DISORDER
     Dosage: 5 ML; 10 ML, EACH EVENING
  2. STRATTERA [Suspect]
     Indication: ATTENTION DEFICIT/HYPERACTIVITY DISORDER
  3. LITHIUM CARBONATE [Concomitant]

REACTIONS (5)
  - CEREBRAL CYST [None]
  - DRUG INEFFECTIVE [None]
  - HOMICIDAL IDEATION [None]
  - MOLE EXCISION [None]
  - SUICIDAL IDEATION [None]
